FAERS Safety Report 7024183-2 (Version None)
Quarter: 2010Q4

REPORT INFORMATION
  Report Type: 
  Country: None (occurrence: None)
  Receive Date: 20101001
  Receipt Date: 20100922
  Transmission Date: 20110411
  Serious: Yes (Hospitalization)
  Sender: FDA-Public Use
  Company Number: JP-ROCHE-725110

PATIENT
  Age: 59 Year
  Sex: Female
  Weight: 45 kg

DRUGS (8)
  1. ACTEMRA [Suspect]
     Indication: RHEUMATOID ARTHRITIS
     Route: 041
     Dates: start: 20091210
  2. BENET [Concomitant]
     Route: 048
  3. URSO 250 [Concomitant]
     Route: 048
  4. TAKEPRON [Concomitant]
     Route: 048
  5. GASLON N [Concomitant]
     Route: 048
  6. PREDNISOLONE [Concomitant]
     Route: 048
  7. LOXONIN [Concomitant]
     Route: 048
     Dates: start: 20100826
  8. GARENOXACIN MESILATE [Concomitant]
     Dosage: DRUG REPORTED AS GENINAX (GARENOXACIN MESILATE HYDRATE)
     Route: 048
     Dates: start: 20100830

REACTIONS (1)
  - TENSION HEADACHE [None]
